FAERS Safety Report 5804069-9 (Version None)
Quarter: 2008Q3

REPORT INFORMATION
  Report Type: 
  Country: None (occurrence: None)
  Receive Date: 20080707
  Receipt Date: 20080707
  Transmission Date: 20090109
  Serious: Yes (Disabling, Other)
  Sender: FDA-Public Use
  Company Number: None

PATIENT
  Age: 61 Year
  Sex: Female

DRUGS (5)
  1. ZOMETA [Suspect]
     Indication: BREAST CANCER
     Dosage: 4 MG MONTHLY IV
     Route: 042
     Dates: start: 20040101, end: 20060801
  2. ZOMETA [Suspect]
     Indication: METASTASIS
     Dosage: 4 MG MONTHLY IV
     Route: 042
     Dates: start: 20040101, end: 20060801
  3. AMOXICILLIN [Concomitant]
  4. AROMASIN [Concomitant]
  5. AMBIEN [Concomitant]

REACTIONS (1)
  - BONE DISORDER [None]
